FAERS Safety Report 7627873-3 (Version None)
Quarter: 2011Q3

REPORT INFORMATION
  Report Type: 
  Country: None (occurrence: None)
  Receive Date: 20110721
  Receipt Date: 20110714
  Transmission Date: 20111222
  Serious: Yes (Hospitalization, Other)
  Sender: FDA-Public Use
  Company Number: US-MERCK-1101USA01768

PATIENT
  Age: 76 Year
  Sex: Female
  Weight: 64 kg

DRUGS (14)
  1. ASPIRIN [Concomitant]
     Route: 065
  2. FOSAMAX [Suspect]
     Indication: OSTEOPOROSIS
     Route: 048
     Dates: start: 19970703, end: 20010201
  3. FERROUS SULFATE [Concomitant]
     Indication: ANAEMIA
     Route: 048
     Dates: start: 19950101
  4. FOSAMAX [Suspect]
     Route: 048
     Dates: start: 20010214, end: 20090312
  5. ZOCOR [Concomitant]
     Indication: LIPIDS
     Route: 048
  6. PROPRANOLOL HYDROCHLORIDE [Concomitant]
     Indication: HYPERTENSION
     Route: 048
  7. FOSAMAX [Suspect]
     Route: 048
     Dates: start: 20010214, end: 20090312
  8. DYRENIUM [Concomitant]
     Indication: HYPERTENSION
     Route: 048
  9. FOSAMAX [Suspect]
     Indication: BONE DENSITY DECREASED
     Route: 048
     Dates: start: 19970703, end: 20010201
  10. VITAMINS (UNSPECIFIED) [Concomitant]
     Route: 065
  11. ALLOPURINOL [Concomitant]
     Indication: GOUT
     Route: 048
     Dates: start: 19970101
  12. CALCIUM (UNSPECIFIED) [Concomitant]
     Route: 048
  13. VITAMIN D (UNSPECIFIED) [Concomitant]
     Route: 065
  14. GLUCOSAMINE SULFATE [Concomitant]
     Route: 065

REACTIONS (51)
  - FATIGUE [None]
  - DIABETIC NEUROPATHY [None]
  - ROTATOR CUFF SYNDROME [None]
  - TACHYCARDIA [None]
  - HYPOTHYROIDISM [None]
  - ANGINA UNSTABLE [None]
  - DIABETES MELLITUS INADEQUATE CONTROL [None]
  - GASTROOESOPHAGEAL REFLUX DISEASE [None]
  - INSOMNIA [None]
  - BREAST CANCER STAGE III [None]
  - TENOSYNOVITIS STENOSANS [None]
  - PAIN [None]
  - MUSCULOSKELETAL PAIN [None]
  - TOOTH DISORDER [None]
  - BURSITIS [None]
  - TEMPERATURE INTOLERANCE [None]
  - CORONARY ARTERY DISEASE [None]
  - FALL [None]
  - HEAD DISCOMFORT [None]
  - GLAUCOMA [None]
  - SCOLIOSIS [None]
  - MALAISE [None]
  - TRIGGER FINGER [None]
  - CARDIAC MURMUR [None]
  - LEFT VENTRICULAR DYSFUNCTION [None]
  - HYPERLIPIDAEMIA [None]
  - COUGH [None]
  - BRONCHITIS [None]
  - IN-STENT CORONARY ARTERY RESTENOSIS [None]
  - FOOT DEFORMITY [None]
  - ESSENTIAL TREMOR [None]
  - DYSPNOEA [None]
  - PNEUMONIA [None]
  - SPINAL OSTEOARTHRITIS [None]
  - HYPOAESTHESIA [None]
  - POOR QUALITY SLEEP [None]
  - PULMONARY FIBROSIS [None]
  - OPEN WOUND [None]
  - PANCYTOPENIA [None]
  - OEDEMA PERIPHERAL [None]
  - OSTEOARTHRITIS [None]
  - CARPAL TUNNEL SYNDROME [None]
  - HYPERTENSION [None]
  - SKIN ULCER [None]
  - HYPERCHOLESTEROLAEMIA [None]
  - FEMUR FRACTURE [None]
  - ADVERSE DRUG REACTION [None]
  - MITRAL VALVE INCOMPETENCE [None]
  - ARTHRALGIA [None]
  - WEIGHT INCREASED [None]
  - KYPHOSIS [None]
